FAERS Safety Report 25840209 (Version 1)
Quarter: 2025Q3

REPORT INFORMATION
  Report Type: Spontaneous
  Country: IR (occurrence: IR)
  Receive Date: 20250924
  Receipt Date: 20250924
  Transmission Date: 20251020
  Serious: Yes (Hospitalization, Other)
  Sender: LEADING PHARMA
  Company Number: IR-LEADINGPHARMA-IR-2025LEALIT00174

PATIENT
  Age: 54 Year
  Sex: Female

DRUGS (1)
  1. HYDROXYUREA [Suspect]
     Active Substance: HYDROXYUREA
     Indication: Thrombocytopenia
     Route: 065

REACTIONS (4)
  - Squamous cell carcinoma [Unknown]
  - Bowen^s disease [Unknown]
  - Actinic keratosis [Unknown]
  - Product use in unapproved indication [Unknown]
